FAERS Safety Report 5971256-9 (Version None)
Quarter: 2008Q4

REPORT INFORMATION
  Report Type: 
  Country: None (occurrence: None)
  Receive Date: 20081128
  Receipt Date: 20081121
  Transmission Date: 20090506
  Serious: Yes (Hospitalization, Other)
  Sender: FDA-Public Use
  Company Number: JP-PFIZER INC-2008012424

PATIENT
  Sex: Male
  Weight: 72.8 kg

DRUGS (20)
  1. ZYVOX [Suspect]
     Indication: STAPHYLOCOCCAL INFECTION
     Dosage: DAILY DOSE:1200MG
     Route: 048
     Dates: start: 20071217, end: 20080107
  2. ZYVOX [Suspect]
     Dosage: DAILY DOSE:1200MG
     Route: 048
     Dates: start: 20080119, end: 20080217
  3. ZYVOX [Suspect]
     Dosage: DAILY DOSE:1200MG
     Route: 048
     Dates: start: 20080224, end: 20080319
  4. ZYVOX [Suspect]
     Dosage: DAILY DOSE:600MG
     Route: 048
     Dates: start: 20080320
  5. ZYVOX [Suspect]
     Dosage: DAILY DOSE:1200MG
     Route: 048
     Dates: start: 20080521, end: 20081104
  6. AMLODIN [Concomitant]
     Dates: start: 20071223
  7. LAFUTIDINE [Concomitant]
  8. FERROMIA [Concomitant]
     Dates: start: 20071217, end: 20081109
  9. MINOCYCLINE HCL [Concomitant]
     Dates: start: 20071217, end: 20080101
  10. EURODIN [Concomitant]
     Dates: start: 20071219
  11. ALL OTHER THERAPEUTIC PRODUCTS [Concomitant]
     Dates: start: 20071219
  12. AVELOX [Concomitant]
     Dates: start: 20071226
  13. FLAVOXATE HCL [Concomitant]
     Dates: start: 20071121
  14. LEPETAN [Concomitant]
     Dates: start: 20071203, end: 20081110
  15. FESIN [Concomitant]
  16. GLYCYRRHIZIC ACID [Concomitant]
     Dates: start: 20080120, end: 20080121
  17. VENOGLOBULIN [Concomitant]
     Dates: start: 20080120, end: 20080121
  18. LIMAPROST [Concomitant]
     Route: 048
  19. VONAFEC [Concomitant]
     Route: 054
  20. FLAVOXATE HCL [Concomitant]
     Dates: start: 20071129

REACTIONS (9)
  - CONDITION AGGRAVATED [None]
  - DECREASED APPETITE [None]
  - DEMENTIA [None]
  - GLOSSITIS [None]
  - HYPOAESTHESIA ORAL [None]
  - IRON DEFICIENCY ANAEMIA [None]
  - OPTIC NERVE DISORDER [None]
  - PANCYTOPENIA [None]
  - TOXIC OPTIC NEUROPATHY [None]
